FAERS Safety Report 22334260 (Version 1)
Quarter: 2023Q2

REPORT INFORMATION
  Report Type: Spontaneous
  Country: US (occurrence: US)
  Receive Date: 20230517
  Receipt Date: 20230517
  Transmission Date: 20230722
  Serious: No
  Sender: FDA-Public Use
  Company Number: US-NOVOPROD-1033921

PATIENT
  Age: 11 Year
  Sex: Female

DRUGS (5)
  1. NORDITROPIN [Suspect]
     Active Substance: SOMATROPIN
     Indication: Growth disorder
     Dosage: UNK
     Route: 058
  2. GENOTROPIN [Concomitant]
     Active Substance: SOMATROPIN
     Indication: Growth disorder
     Dosage: GENOTROPIN PEN 12 - NOT YET STARTED
  3. VITAMINS NOS [Concomitant]
     Active Substance: VITAMINS
     Indication: Growth disorder
     Dosage: UNK
     Dates: start: 2016
  4. OMNITROPE [Concomitant]
     Active Substance: SOMATROPIN
     Indication: Growth disorder
     Dosage: STARTED 2016 OR 2017
  5. HUMATROPE [Concomitant]
     Active Substance: SOMATROPIN
     Indication: Growth disorder
     Dosage: TAKEN FOR 1 YEAR

REACTIONS (4)
  - Insulin-like growth factor decreased [Not Recovered/Not Resolved]
  - Overdose [Unknown]
  - Product use issue [Not Recovered/Not Resolved]
  - Product availability issue [Not Recovered/Not Resolved]

NARRATIVE: CASE EVENT DATE: 20220901
